FAERS Safety Report 5685747-1 (Version None)
Quarter: 2008Q1

REPORT INFORMATION
  Report Type: 
  Country: None (occurrence: None)
  Receive Date: 20080328
  Receipt Date: 20080307
  Transmission Date: 20080703
  Serious: Yes (Death, Other)
  Sender: FDA-Public Use
  Company Number: KR-BAYER-200815239GPV

PATIENT

DRUGS (4)
  1. FLUDARABINE [Suspect]
     Indication: ACUTE MYELOID LEUKAEMIA
     Route: 042
  2. IDARUBICIN HCL [Suspect]
     Indication: ACUTE MYELOID LEUKAEMIA
     Route: 042
  3. CYTARABINE [Suspect]
     Indication: ACUTE MYELOID LEUKAEMIA
     Route: 042
  4. NEUPOGEN [Suspect]
     Indication: ACUTE MYELOID LEUKAEMIA
     Route: 065

REACTIONS (8)
  - ACUTE MYELOID LEUKAEMIA RECURRENT [None]
  - APLASIA [None]
  - CYTOGENETIC ABNORMALITY [None]
  - DRUG TOXICITY [None]
  - INFECTION [None]
  - STEM CELL TRANSPLANT [None]
  - TREATMENT FAILURE [None]
  - UNEVALUABLE EVENT [None]
